FAERS Safety Report 7711573-5 (Version None)
Quarter: 2011Q3

REPORT INFORMATION
  Report Type: 
  Country: None (occurrence: None)
  Receive Date: 20110826
  Receipt Date: 20110727
  Transmission Date: 20111222
  Serious: No
  Sender: FDA-Public Use
  Company Number: US-BRISTOL-MYERS SQUIBB COMPANY-15929961

PATIENT
  Age: 79 Year
  Sex: Male

DRUGS (3)
  1. METFORMIN HCL [Suspect]
  2. ONGLYZA [Suspect]
  3. GLIPIZIDE [Suspect]

REACTIONS (1)
  - BLOOD GLUCOSE INCREASED [None]
